FAERS Safety Report 9190448 (Version 3)
Quarter: 2013Q2

REPORT INFORMATION
  Report Type: Report from Study
  Country: US (occurrence: US)
  Receive Date: 20130326
  Receipt Date: 20130422
  Transmission Date: 20140414
  Serious: Yes (Hospitalization, Other)
  Sender: FDA-Public Use
  Company Number: US-SHIRE-ALL1-2013-01740

PATIENT
  Age: 43 Year
  Sex: Male
  Weight: 141.7 kg

DRUGS (11)
  1. 489 (LISDEXAMFETAMINE DIMESYLATE) [Suspect]
     Indication: BINGE EATING
     Dosage: 30 MG, 1X/DAY:QD
     Route: 048
     Dates: start: 20130312, end: 20130317
  2. DICLOFENAC [Concomitant]
     Indication: OSTEOARTHRITIS
     Dosage: 75 MG, AS REQ^D
     Route: 048
     Dates: start: 2003
  3. IBUPROFEN [Concomitant]
     Indication: BACK PAIN
     Dosage: 800 MG, AS REQ^D
     Route: 048
     Dates: start: 2007
  4. MELOXICAM [Concomitant]
     Indication: MUSCULOSKELETAL PAIN
     Dosage: 15 MG, AS REQ^D
     Route: 048
     Dates: start: 201212
  5. FERROUS SULFATE [Concomitant]
     Indication: MINERAL SUPPLEMENTATION
     Dosage: 325 MG, 2X/DAY:BID
     Route: 048
     Dates: start: 2007
  6. BACLOFEN [Concomitant]
     Indication: MUSCLE SPASMS
     Dosage: 10 MG, 1X/DAY:QD
     Route: 048
     Dates: start: 2010
  7. SILDENAFIL CITRATE [Concomitant]
     Indication: ERECTILE DYSFUNCTION
     Dosage: 100 MG, AS REQ^D
     Route: 048
     Dates: start: 2011
  8. OMEPRAZOLE [Concomitant]
     Indication: GASTROOESOPHAGEAL REFLUX DISEASE
     Dosage: 20 MG, 2X/DAY:BID
     Route: 048
     Dates: start: 2003
  9. HYDROCHLOROTHIAZIDE W/LISINOPRIL [Concomitant]
     Indication: HYPERTENSION
     Dosage: 1 DF, 1X/DAY:QD ((HCTZ25 MG/LISINOPRIL 20 MG)
     Route: 048
     Dates: start: 2003
  10. PRAVASTATIN [Concomitant]
     Indication: DYSLIPIDAEMIA
     Dosage: 80 MG, 1X/DAY:QD
     Route: 048
     Dates: start: 2008
  11. AMLODIPINE [Concomitant]
     Indication: HYPERTENSION
     Dosage: 5 MG, 1X/DAY:QD
     Route: 048
     Dates: start: 2008

REACTIONS (1)
  - Syncope [Recovered/Resolved]
